FAERS Safety Report 8024298-6 (Version None)
Quarter: 2012Q1

REPORT INFORMATION
  Report Type: 
  Country: None (occurrence: None)
  Receive Date: 20120105
  Receipt Date: 20111227
  Transmission Date: 20120608
  Serious: Yes (Hospitalization)
  Sender: FDA-Public Use
  Company Number: GB-ASTRAZENECA-2011SE73011

PATIENT
  Age: 18985 Day
  Sex: Male

DRUGS (8)
  1. IMIDAPRIL HYDROCHLORIDE [Concomitant]
     Indication: CARDIOVASCULAR EVENT PROPHYLAXIS
     Route: 048
  2. PLAVIX [Suspect]
     Indication: CORONARY ARTERY DISEASE
     Route: 048
     Dates: start: 20110907, end: 20111127
  3. PITAVASTATIN CALCIUM [Concomitant]
     Indication: HYPERCHOLESTEROLAEMIA
     Route: 048
  4. NICORANDIL [Concomitant]
     Indication: ANGINA PECTORIS
     Route: 048
  5. ACTIT [Concomitant]
     Indication: FLUID REPLACEMENT
     Route: 042
     Dates: start: 20111128, end: 20111128
  6. ASPIRIN [Suspect]
     Indication: CORONARY ARTERY DISEASE
     Route: 048
     Dates: end: 20111127
  7. MEROPENEM HYDRATE [Concomitant]
     Indication: PNEUMONIA
     Route: 042
     Dates: start: 20111128, end: 20111204
  8. OMEPRAZOLE [Concomitant]
     Indication: GASTRITIS PROPHYLAXIS
     Route: 048

REACTIONS (1)
  - BRONCHIAL HAEMORRHAGE [None]
